FAERS Safety Report 11342405 (Version 1)
Quarter: 2015Q3

REPORT INFORMATION
  Report Type: Spontaneous
  Country: DE (occurrence: DE)
  Receive Date: 20150805
  Receipt Date: 20150805
  Transmission Date: 20151125
  Serious: Yes (Other)
  Sender: FDA-Public Use
  Company Number: DE-TEVA-583151GER

PATIENT
  Age: 72 Year
  Sex: Female

DRUGS (1)
  1. COTRIM [Suspect]
     Active Substance: SULFAMETHOXAZOLE\TRIMETHOPRIM
     Indication: BLADDER IRRIGATION
     Route: 065

REACTIONS (4)
  - C-reactive protein increased [Unknown]
  - Drug ineffective [Unknown]
  - Condition aggravated [Unknown]
  - Blood creatine increased [Unknown]
